FAERS Safety Report 9126987 (Version 1)
Quarter: 2013Q1

REPORT INFORMATION
  Report Type: Spontaneous
  Country: NL (occurrence: NL)
  Receive Date: 20130228
  Receipt Date: 20130228
  Transmission Date: 20140127
  Serious: Yes (Other)
  Sender: FDA-Public Use
  Company Number: PHHY2013NL019350

PATIENT
  Sex: Male

DRUGS (1)
  1. SANDOSTATIN LAR [Suspect]
     Dosage: 30 MG, ONCE EVERY 3 WEEKS
     Route: 030
     Dates: end: 20130222

REACTIONS (1)
  - General physical health deterioration [Unknown]
